FAERS Safety Report 6618440-9 (Version None)
Quarter: 2010Q1

REPORT INFORMATION
  Report Type: 
  Country: None (occurrence: None)
  Receive Date: 20100308
  Receipt Date: 20100301
  Transmission Date: 20100710
  Serious: Yes (Hospitalization)
  Sender: FDA-Public Use
  Company Number: IT-JNJFOC-20100300504

PATIENT
  Sex: Female

DRUGS (3)
  1. RISPERDAL [Suspect]
     Indication: DEPRESSION
     Route: 048
  2. TEGRETOL [Suspect]
     Indication: DEPRESSION
     Route: 048
  3. AMOXICILLIN [Concomitant]
     Indication: HYPERTHERMIA
     Route: 048

REACTIONS (2)
  - OFF LABEL USE [None]
  - STEVENS-JOHNSON SYNDROME [None]
